FAERS Safety Report 5824528-2 (Version None)
Quarter: 2008Q3

REPORT INFORMATION
  Report Type: 
  Country: None (occurrence: None)
  Receive Date: 20080728
  Receipt Date: 20080103
  Transmission Date: 20090109
  Serious: No
  Sender: FDA-Public Use
  Company Number: US-BAYER-200810743NA

PATIENT
  Age: 44 Year
  Sex: Female

DRUGS (2)
  1. BETASERON [Suspect]
     Indication: MULTIPLE SCLEROSIS
     Route: 058
     Dates: start: 19970701
  2. KENALOG [Suspect]
     Route: 030
     Dates: start: 20070101

REACTIONS (3)
  - INJECTION SITE ATROPHY [None]
  - INJECTION SITE ULCER [None]
  - SKIN DEPIGMENTATION [None]
